FAERS Safety Report 9927360 (Version 1)
Quarter: 2014Q1

REPORT INFORMATION
  Report Type: Spontaneous
  Country: US (occurrence: US)
  Receive Date: 20140226
  Receipt Date: 20140226
  Transmission Date: 20141002
  Serious: No
  Sender: FDA-Public Use
  Company Number: US-009507513-1402USA011396

PATIENT
  Age: 22 Year
  Sex: Female
  Weight: 285 kg

DRUGS (1)
  1. NEXPLANON [Suspect]
     Indication: CONTRACEPTION
     Dosage: 1 ROD/3 YEARS
     Route: 059
     Dates: start: 20131019

REACTIONS (3)
  - Medical device complication [Unknown]
  - Device breakage [Unknown]
  - No adverse event [Unknown]
